FAERS Safety Report 4359165-2 (Version None)
Quarter: 2004Q2

REPORT INFORMATION
  Report Type: 
  Country: None (occurrence: None)
  Receive Date: 20040517
  Receipt Date: 20040517
  Transmission Date: 20050107
  Serious: Yes (Hospitalization)
  Sender: FDA-Public Use
  Company Number: None

PATIENT
  Age: 83 Year
  Sex: Male

DRUGS (5)
  1. WARFARIN SODIUM [Suspect]
     Indication: ATRIAL FIBRILLATION
     Dosage: 2.5 MG QD
     Dates: start: 20020901
  2. SERTRALINE [Concomitant]
  3. DONEPEZIL HCL [Concomitant]
  4. LANSOPRAZOLE [Concomitant]
  5. GOSERELIN [Concomitant]

REACTIONS (2)
  - ANAEMIA [None]
  - ECCHYMOSIS [None]
